FAERS Safety Report 8391707-2 (Version None)
Quarter: 2012Q1

REPORT INFORMATION
  Report Type: 
  Country: None (occurrence: None)
  Receive Date: 20120323
  Receipt Date: 20110418
  Transmission Date: 20120608
  Serious: Yes (Disabling, Other)
  Sender: FDA-Public Use
  Company Number: 163-21880-11031427

PATIENT
  Age: 54 Year
  Sex: Female
  Weight: 115.2136 kg

DRUGS (3)
  1. REVLIMID [Suspect]
     Indication: MULTIPLE MYELOMA
     Dosage: 25 MG, DAILY FOR 21 DAYS, PO
     Route: 048
     Dates: start: 20100907, end: 20101208
  2. VELCADE [Suspect]
     Indication: MULTIPLE MYELOMA
     Dosage: 1.3 MG/M2, DAYS 1, 4, 8, 11, IV   1.3 MG/M2, WEEKLY, IV
     Route: 042
     Dates: start: 20101015, end: 20101201
  3. VELCADE [Suspect]
     Indication: MULTIPLE MYELOMA
     Dosage: 1.3 MG/M2, DAYS 1, 4, 8, 11, IV   1.3 MG/M2, WEEKLY, IV
     Route: 042
     Dates: start: 20100831, end: 20101001

REACTIONS (1)
  - NEURALGIA [None]
